FAERS Safety Report 9220168 (Version 1)
Quarter: 2013Q2

REPORT INFORMATION
  Report Type: Spontaneous
  Country: ES (occurrence: ES)
  Receive Date: 20130409
  Receipt Date: 20130409
  Transmission Date: 20140414
  Serious: Yes (Hospitalization)
  Sender: FDA-Public Use
  Company Number: ES-ROCHE-1211539

PATIENT
  Age: 59 Year
  Sex: Female

DRUGS (2)
  1. HERCEPTIN [Suspect]
     Indication: BREAST CANCER STAGE IV
     Route: 065
     Dates: start: 20120604
  2. MYOCET [Suspect]
     Indication: BREAST CANCER STAGE IV
     Route: 065
     Dates: start: 20120604

REACTIONS (2)
  - Neutropenia [Recovered/Resolved]
  - Herpes zoster [Unknown]
